FAERS Safety Report 9227402 (Version 1)
Quarter: 2013Q2

REPORT INFORMATION
  Report Type: Spontaneous
  Country: IT (occurrence: None)
  Receive Date: 20130410
  Receipt Date: 20130410
  Transmission Date: 20140414
  Serious: Yes (Other)
  Sender: FDA-Public Use
  Company Number: SYM-2013-02688

PATIENT
  Sex: Male

DRUGS (3)
  1. FLUOROURACIL [Suspect]
     Indication: MATERNAL EXPOSURE TIMING UNSPECIFIED
  2. IRINOTECAN [Suspect]
     Indication: MATERNAL EXPOSURE TIMING UNSPECIFIED
  3. FOLINIC ACID [Suspect]
     Indication: MATERNAL EXPOSURE TIMING UNSPECIFIED
     Dosage: FEW WEEJS

REACTIONS (6)
  - Maternal drugs affecting foetus [None]
  - Foetal growth restriction [None]
  - Premature baby [None]
  - Low birth weight baby [None]
  - Caesarean section [None]
  - Apgar score low [None]
